FAERS Safety Report 4721572-3 (Version None)
Quarter: 2005Q3

REPORT INFORMATION
  Report Type: 
  Country: None (occurrence: None)
  Receive Date: 20050721
  Receipt Date: 20041203
  Transmission Date: 20060218
  Serious: Yes (Other)
  Sender: FDA-Public Use
  Company Number: US-BRISTOL-MYERS SQUIBB COMPANY-12783882

PATIENT
  Sex: Female

DRUGS (4)
  1. COUMADIN [Suspect]
     Dates: start: 20040501
  2. COMTREX MS NIGHT TABS [Suspect]
     Indication: NASOPHARYNGITIS
     Dates: start: 20041120, end: 20041121
  3. MULTI-VITAMIN [Concomitant]
  4. CALCIUM GLUCONATE [Concomitant]

REACTIONS (2)
  - HAEMORRHAGE URINARY TRACT [None]
  - INTERNATIONAL NORMALISED RATIO INCREASED [None]
